FAERS Safety Report 14665713 (Version 1)
Quarter: 2018Q1

REPORT INFORMATION
  Report Type: Spontaneous
  Country: US (occurrence: US)
  Receive Date: 20180320
  Receipt Date: 20180320
  Transmission Date: 20180509
  Serious: Yes (Other)
  Sender: FDA-Public Use
  Company Number: None

PATIENT
  Age: 78 Year
  Sex: Female
  Weight: 76.5 kg

DRUGS (5)
  1. ASPIRIN 81 MG [Concomitant]
     Active Substance: ASPIRIN
  2. RANITIDINE 150 MG BID [Concomitant]
  3. BOTOX [Suspect]
     Active Substance: ONABOTULINUMTOXINA
     Indication: HYPERTONIC BLADDER
     Dosage: ?          OTHER FREQUENCY:ONCE;OTHER ROUTE:BLADDER WALL?
     Dates: start: 20180319
  4. LACTOBACILLUS (PROBIOTIC) [Concomitant]
  5. OXYBUTININ 10 MG DAILY [Concomitant]

REACTIONS (2)
  - Hypertonic bladder [None]
  - Hypertensive crisis [None]

NARRATIVE: CASE EVENT DATE: 20180319
